FAERS Safety Report 25719315 (Version 1)
Quarter: 2025Q3

REPORT INFORMATION
  Report Type: Spontaneous
  Country: US (occurrence: US)
  Receive Date: 20250824
  Receipt Date: 20250824
  Transmission Date: 20251021
  Serious: Yes (Other)
  Sender: GLAXOSMITHKLINE
  Company Number: US-GSK-US2025105025

PATIENT
  Sex: Female
  Weight: 68.31 kg

DRUGS (1)
  1. ZEJULA [Suspect]
     Active Substance: NIRAPARIB
     Indication: Fallopian tube cancer
     Dosage: 200 MG, QD, BY MOUTH

REACTIONS (2)
  - Neuropathy peripheral [Not Recovered/Not Resolved]
  - Fatigue [Unknown]
